FAERS Safety Report 7715869-2 (Version None)
Quarter: 2011Q3

REPORT INFORMATION
  Report Type: 
  Country: None (occurrence: None)
  Receive Date: 20110829
  Receipt Date: 20110829
  Transmission Date: 20111222
  Serious: Yes (Life-Threatening)
  Sender: FDA-Public Use
  Company Number: None

PATIENT
  Age: 23 Year
  Sex: Female
  Weight: 74.842 kg

DRUGS (13)
  1. FISH OIL [Concomitant]
  2. VITAMIN D/CALCIUM 800/600 [Concomitant]
     Route: 048
  3. TOPIRAMATE [Concomitant]
     Route: 048
  4. IPRATOPIUM 2 SPRAY [Concomitant]
  5. VITAMIN B COMPLEX CAP [Concomitant]
  6. LITHIUM CARBONATE [Concomitant]
     Route: 048
  7. SENNA [Concomitant]
     Route: 048
  8. MULTI-VITAMIN [Concomitant]
  9. MEMANTINE [Concomitant]
     Route: 048
  10. CYMBALTA [Concomitant]
     Route: 048
  11. CLOZAPINE [Concomitant]
     Route: 048
  12. SYNTHROID [Concomitant]
     Route: 048
  13. NUVARING [Suspect]
     Indication: MENSTRUAL CYCLE MANAGEMENT
     Dosage: RING IN PLACE 22 DAYS
     Route: 067
     Dates: start: 20110806, end: 20110828

REACTIONS (5)
  - LACERATION [None]
  - DEPRESSION [None]
  - SUICIDE ATTEMPT [None]
  - SUICIDAL IDEATION [None]
  - PSYCHOTIC DISORDER [None]
